FAERS Safety Report 12283892 (Version 1)
Quarter: 2016Q2

REPORT INFORMATION
  Report Type: Spontaneous
  Country: US (occurrence: US)
  Receive Date: 20160419
  Receipt Date: 20160419
  Transmission Date: 20160815
  Serious: No
  Sender: FDA-Public Use
  Company Number: US-BANPHARM-20154376

PATIENT
  Age: 13 Year
  Sex: Male
  Weight: 47.63 kg

DRUGS (2)
  1. ALEVE [Suspect]
     Active Substance: NAPROXEN SODIUM
     Indication: MUSCLE STRAIN
     Dosage: 1 DF, BID,
     Route: 048
     Dates: start: 201510, end: 20151029
  2. FACE CREAM [Concomitant]
     Active Substance: UNSPECIFIED INGREDIENT

REACTIONS (4)
  - Eructation [Recovered/Resolved]
  - Dyspepsia [Recovered/Resolved]
  - Incorrect drug administration duration [Unknown]
  - Nausea [Recovered/Resolved]

NARRATIVE: CASE EVENT DATE: 201510
